FAERS Safety Report 10176833 (Version 2)
Quarter: 2014Q2

REPORT INFORMATION
  Report Type: Spontaneous
  Country: US (occurrence: US)
  Receive Date: 20140516
  Receipt Date: 20140620
  Transmission Date: 20141212
  Serious: No
  Sender: FDA-Public Use
  Company Number: US-BAXTER-2014BAX023003

PATIENT
  Sex: Female
  Weight: 107.6 kg

DRUGS (2)
  1. DIANEAL LOW CALCIUM [Suspect]
     Indication: PERITONEAL DIALYSIS
     Route: 033
  2. DIANEAL LOW CALCIUM (ULTRABAG) [Suspect]
     Indication: PERITONEAL DIALYSIS
     Route: 033

REACTIONS (8)
  - Influenza like illness [Unknown]
  - Feeling hot [Recovered/Resolved]
  - Dizziness [Recovered/Resolved]
  - Peritoneal dialysis complication [Recovering/Resolving]
  - Dyspnoea [Recovered/Resolved]
  - Constipation [Recovering/Resolving]
  - Vomiting [Recovered/Resolved]
  - Abdominal distension [Unknown]
